FAERS Safety Report 5670431-0 (Version None)
Quarter: 2008Q1

REPORT INFORMATION
  Report Type: 
  Country: None (occurrence: None)
  Receive Date: 20080318
  Receipt Date: 20080307
  Transmission Date: 20080703
  Serious: Yes (Other)
  Sender: FDA-Public Use
  Company Number: US-JNJFOC-20080302023

PATIENT
  Age: 58 Year
  Sex: Female

DRUGS (4)
  1. REMICADE [Suspect]
     Indication: CROHN'S DISEASE
     Route: 042
  2. LORTAB [Concomitant]
  3. ASACAL [Concomitant]
  4. PAXIL [Concomitant]

REACTIONS (1)
  - UPPER MOTOR NEURONE LESION [None]
